FAERS Safety Report 4568167-2 (Version None)
Quarter: 2005Q1

REPORT INFORMATION
  Report Type: 
  Country: None (occurrence: None)
  Receive Date: 20050131
  Receipt Date: 20040616
  Transmission Date: 20050727
  Serious: Yes (Hospitalization)
  Sender: FDA-Public Use
  Company Number: MSTR-NO-0109C-0502

PATIENT
  Age: 66 Year
  Sex: Male
  Weight: 68 kg

DRUGS (11)
  1. METASTRON [Suspect]
     Indication: METASTATIC PAIN
     Dosage: 130 MBQ, SINGLE DOSE, I.V.
     Route: 042
     Dates: start: 20010814, end: 20010814
  2. MORPHINE SULFATE [Concomitant]
  3. DICLOFENAC SODIUM [Concomitant]
  4. BUPRENORPHINE HYDROCHLORIDE (0.2 MG) [Concomitant]
  5. FOSFESTROL [Concomitant]
  6. MAGNESIUM OXIDE [Concomitant]
  7. SENNOSIDE [Concomitant]
  8. DOMPERIDONE [Concomitant]
  9. PROCHLORPERAZINE [Concomitant]
  10. KETOPROFEN [Concomitant]
  11. MISOPROSTOL [Concomitant]

REACTIONS (4)
  - ANOREXIA [None]
  - DISEASE PROGRESSION [None]
  - NAUSEA [None]
  - VOMITING [None]
